FAERS Safety Report 7624814-X (Version None)
Quarter: 2011Q3

REPORT INFORMATION
  Report Type: 
  Country: None (occurrence: None)
  Receive Date: 20110720
  Receipt Date: 20110711
  Transmission Date: 20111222
  Serious: Yes (Other)
  Sender: FDA-Public Use
  Company Number: US-ASTRAZENECA-2011SE32333

PATIENT
  Age: 56 Year
  Sex: Female

DRUGS (2)
  1. SEROQUEL [Suspect]
     Dosage: 100-200 MG DAILY
     Route: 048
  2. SEROQUEL [Suspect]
     Route: 048

REACTIONS (4)
  - MYOCARDIAL INFARCTION [None]
  - SEDATION [None]
  - DRUG PRESCRIBING ERROR [None]
  - DIABETES MELLITUS [None]
